FAERS Safety Report 5732195-1 (Version None)
Quarter: 2008Q2

REPORT INFORMATION
  Report Type: 
  Country: None (occurrence: None)
  Receive Date: 20080508
  Receipt Date: 20080428
  Transmission Date: 20081010
  Serious: Yes (Death, Other)
  Sender: FDA-Public Use
  Company Number: US-PFIZER INC-2008025279

PATIENT
  Sex: Male
  Weight: 67.6 kg

DRUGS (7)
  1. REVATIO [Suspect]
     Indication: PULMONARY HYPERTENSION
  2. ALEVE [Concomitant]
     Route: 048
  3. TESSALON [Concomitant]
  4. ACETYLSALICYLIC ACID SRT [Concomitant]
     Route: 048
  5. XANAX [Concomitant]
     Route: 048
  6. LASIX [Concomitant]
     Route: 048
  7. OXYGEN [Concomitant]
     Route: 055

REACTIONS (2)
  - CONDITION AGGRAVATED [None]
  - PULMONARY HYPERTENSION [None]
